FAERS Safety Report 9697719 (Version 1)
Quarter: 2013Q4

REPORT INFORMATION
  Report Type: Spontaneous
  Country: BE (occurrence: None)
  Receive Date: 20131031
  Receipt Date: 20131031
  Transmission Date: 20140711
  Serious: Yes (Other)
  Sender: FDA-Public Use
  Company Number: 2013038494

PATIENT
  Age: 10 Year
  Sex: Male

DRUGS (2)
  1. HIZENTRA [Suspect]
     Indication: HYPOGAMMAGLOBULINAEMIA
     Route: 058
     Dates: start: 20121130
  2. LEDERTREXATE (METHOTREXATE) [Concomitant]

REACTIONS (2)
  - Rheumatoid arthritis [None]
  - Fatigue [None]
